FAERS Safety Report 14269142 (Version 1)
Quarter: 2017Q4

REPORT INFORMATION
  Report Type: Spontaneous
  Country: US (occurrence: US)
  Receive Date: 20171211
  Receipt Date: 20171211
  Transmission Date: 20180321
  Serious: Yes (Death)
  Sender: FDA-Public Use
  Company Number: US-PERRIGO-17US030736

PATIENT
  Age: 41 Year
  Sex: Female

DRUGS (7)
  1. ESCITALOPRAM [Suspect]
     Active Substance: ESCITALOPRAM OXALATE
     Indication: COMPLETED SUICIDE
     Dosage: UNKNOWN
     Route: 048
  2. VITAMIN B1 [Suspect]
     Active Substance: THIAMINE HYDROCHLORIDE
     Indication: COMPLETED SUICIDE
     Dosage: UNKNOWN
     Route: 048
  3. LORATADINE. [Suspect]
     Active Substance: LORATADINE
     Indication: COMPLETED SUICIDE
     Dosage: UNKNOWN
     Route: 048
  4. FOLIC ACID. [Suspect]
     Active Substance: FOLIC ACID
     Indication: COMPLETED SUICIDE
     Dosage: UNKNOWN
     Route: 048
  5. ETHYLENE GLYCOL [Suspect]
     Active Substance: ETHYLENE GLYCOL
     Indication: COMPLETED SUICIDE
     Dosage: UNKNOWN
     Route: 048
  6. FUROSEMIDE. [Suspect]
     Active Substance: FUROSEMIDE
     Indication: COMPLETED SUICIDE
     Dosage: UNKNOWN
     Route: 048
  7. LEVOTHYROXINE. [Suspect]
     Active Substance: LEVOTHYROXINE
     Indication: COMPLETED SUICIDE
     Dosage: UNKNOWN
     Route: 048

REACTIONS (1)
  - Death [Fatal]
